FAERS Safety Report 23077296 (Version 1)
Quarter: 2023Q4

REPORT INFORMATION
  Report Type: Spontaneous
  Country: IN (occurrence: IN)
  Receive Date: 20231018
  Receipt Date: 20231018
  Transmission Date: 20240110
  Serious: Yes (Death, Other)
  Sender: FDA-Public Use
  Company Number: IN-SANDOZ-SDZ2023IN010158

PATIENT
  Age: 57 Year
  Sex: Female

DRUGS (2)
  1. CARBOPLATIN [Suspect]
     Active Substance: CARBOPLATIN
     Indication: Breast cancer stage IV
     Dosage: 3 TIMES WEEKLY
     Route: 065
  2. GEMCITABINE [Suspect]
     Active Substance: GEMCITABINE
     Indication: Breast cancer stage IV
     Dosage: ON DAY 1 AND DAY 8
     Route: 065

REACTIONS (3)
  - Disease progression [Fatal]
  - Capillary leak syndrome [Unknown]
  - Pericardial effusion [Unknown]
